FAERS Safety Report 4989241-2 (Version None)
Quarter: 2006Q2

REPORT INFORMATION
  Report Type: 
  Country: None (occurrence: None)
  Receive Date: 20060425
  Receipt Date: 20060410
  Transmission Date: 20061013
  Serious: Yes (Other)
  Sender: FDA-Public Use
  Company Number: 2006049663

PATIENT
  Age: 64 Year
  Sex: Female
  Weight: 61.6892 kg

DRUGS (6)
  1. CELEBREX [Suspect]
     Indication: INFLAMMATION
     Dosage: 200 MG (200 MG, 1 IN 1 D)
     Dates: start: 20060407, end: 20060410
  2. PROLOID (THYROGLOBULIN) [Concomitant]
  3. PREMARIN [Concomitant]
  4. DICYCLOMINE [Concomitant]
  5. PROTONIX (PANTOPROZOLE) [Concomitant]
  6. MULTIVITAMINS (MULITIVAMINS) [Concomitant]

REACTIONS (2)
  - HYPERSENSITIVITY [None]
  - SKIN EXFOLIATION [None]
